FAERS Safety Report 23509199 (Version 1)
Quarter: 2024Q1

REPORT INFORMATION
  Report Type: Other
  Country: CN (occurrence: None)
  Receive Date: 20240210
  Receipt Date: 20240210
  Transmission Date: 20240409
  Serious: Yes (Other)
  Sender: FDA-Public Use
  Company Number: CN-Nivagen-000100

PATIENT
  Sex: Female

DRUGS (3)
  1. TEMOZOLOMIDE [Suspect]
     Active Substance: TEMOZOLOMIDE
     Indication: Glioblastoma
     Dosage: 240 MG/M2
     Route: 048
  2. BEVACIZUMAB [Suspect]
     Active Substance: BEVACIZUMAB
     Indication: Glioblastoma
     Dosage: 600 MG/KG
     Route: 048
  3. SINTILIMAB [Suspect]
     Active Substance: SINTILIMAB
     Indication: Glioblastoma
     Dosage: 200 MG
     Route: 048

REACTIONS (2)
  - Glioblastoma [Unknown]
  - Disease progression [Unknown]
